FAERS Safety Report 10615892 (Version 1)
Quarter: 2014Q4

REPORT INFORMATION
  Report Type: Spontaneous
  Country: US (occurrence: None)
  Receive Date: 20141125
  Receipt Date: 20141125
  Transmission Date: 20150529
  Serious: Yes (Life-Threatening, Disabling)
  Sender: FDA-Public Use
  Company Number: None

PATIENT
  Age: 59 Year
  Sex: Male
  Weight: 22.68 kg

DRUGS (11)
  1. ALPRALAZOLAM [Concomitant]
  2. ZOLPIDEM [Concomitant]
     Active Substance: ZOLPIDEM\ZOLPIDEM TARTRATE
  3. ACETAMINOPHEN. [Concomitant]
     Active Substance: ACETAMINOPHEN
  4. IBUPROPHEN [Concomitant]
  5. ASPIRIN. [Concomitant]
     Active Substance: ASPIRIN
  6. METOPROLOL TARTRATE. [Concomitant]
     Active Substance: METOPROLOL TARTRATE
  7. MULTIVITAMINS [Concomitant]
     Active Substance: VITAMINS
  8. MIRTAZAPINE. [Suspect]
     Active Substance: MIRTAZAPINE
     Indication: POST-TRAUMATIC STRESS DISORDER
     Dosage: 1 PILL
     Route: 048
     Dates: start: 20140401, end: 20140824
  9. MIRTAZAPINE. [Suspect]
     Active Substance: MIRTAZAPINE
     Indication: DEPRESSION
     Dosage: 1 PILL
     Route: 048
     Dates: start: 20140401, end: 20140824
  10. MIRTAZAPINE. [Suspect]
     Active Substance: MIRTAZAPINE
     Indication: INSOMNIA
     Dosage: 1 PILL
     Route: 048
     Dates: start: 20140401, end: 20140824
  11. PROZAC(FLUOXETINE) [Concomitant]

REACTIONS (8)
  - Loss of consciousness [None]
  - Accident at home [None]
  - Syncope [None]
  - Fall [None]
  - Rib fracture [None]
  - Concussion [None]
  - Dizziness [None]
  - Intervertebral disc protrusion [None]

NARRATIVE: CASE EVENT DATE: 20140401
